FAERS Safety Report 6609269-6 (Version None)
Quarter: 2010Q1

REPORT INFORMATION
  Report Type: 
  Country: None (occurrence: None)
  Receive Date: 20100223
  Receipt Date: 20100208
  Transmission Date: 20100710
  Serious: Yes (Other)
  Sender: FDA-Public Use
  Company Number: SPV1-2010-00236

PATIENT
  Age: 12 Year
  Sex: Male
  Weight: 39.8 kg

DRUGS (2)
  1. GUANFACINE HYDROCHLORIDE [Suspect]
     Indication: ATTENTION DEFICIT/HYPERACTIVITY DISORDER
     Dosage: BLINDED, INFORMAITON WITHHELD
     Dates: start: 20100114, end: 20100101
  2. GUANFACINE HYDROCHLORIDE [Suspect]
     Indication: ATTENTION DEFICIT/HYPERACTIVITY DISORDER
     Dosage: BLINDED, INFORMAITON WITHHELD
     Dates: start: 20100202

REACTIONS (6)
  - ABDOMINAL PAIN [None]
  - CONSTIPATION [None]
  - HEART RATE DECREASED [None]
  - PAINFUL DEFAECATION [None]
  - PRESYNCOPE [None]
  - SYNCOPE [None]
